FAERS Safety Report 15991621 (Version 1)
Quarter: 2019Q1

REPORT INFORMATION
  Report Type: Spontaneous
  Country: GB (occurrence: GB)
  Receive Date: 20190221
  Receipt Date: 20190221
  Transmission Date: 20190418
  Serious: Yes (Other)
  Sender: FDA-Public Use
  Company Number: GB-BAYER-2019-037478

PATIENT
  Age: 51 Year
  Sex: Female
  Weight: 97 kg

DRUGS (4)
  1. CIPROXIN [Suspect]
     Active Substance: CIPROFLOXACIN
     Dosage: 1000 MG, QD
     Route: 048
     Dates: start: 20190201, end: 20190202
  2. ZOLMITRIPTAN. [Concomitant]
     Active Substance: ZOLMITRIPTAN
     Dosage: 1 DF, UNK
  3. AMOXICILLIN;CLAVULANIC ACID [Concomitant]
     Active Substance: AMOXICILLIN\CLAVULANIC ACID
     Dosage: 3 DF, UNK
     Dates: start: 20190204
  4. CIPROXIN [Suspect]
     Active Substance: CIPROFLOXACIN
     Dosage: 1000 MG, QD
     Dates: start: 20190204

REACTIONS (1)
  - Vision blurred [Recovered/Resolved]

NARRATIVE: CASE EVENT DATE: 20190202
